FAERS Safety Report 9829731 (Version 2)
Quarter: 2014Q1

REPORT INFORMATION
  Report Type: Other
  Country: IR (occurrence: IR)
  Receive Date: 20140120
  Receipt Date: 20140123
  Transmission Date: 20141002
  Serious: Yes (Death, Other)
  Sender: FDA-Public Use
  Company Number: IR-BRISTOL-MYERS SQUIBB COMPANY-20029310

PATIENT
  Sex: 0

DRUGS (1)
  1. METFORMIN HCL [Suspect]
     Indication: TYPE 2 DIABETES MELLITUS
     Dosage: RANGE; 750MG TO 100GRAMS WITH A MEAN OF 14-18G

REACTIONS (8)
  - Toxicity to various agents [Fatal]
  - Depressed level of consciousness [Unknown]
  - Loss of consciousness [Unknown]
  - Renal failure acute [Unknown]
  - Lactic acidosis [Unknown]
  - Abdominal pain upper [Unknown]
  - Hypoglycaemia [Unknown]
  - Overdose [Unknown]
